FAERS Safety Report 10354789 (Version 1)
Quarter: 2014Q3

REPORT INFORMATION
  Report Type: Spontaneous
  Country: US (occurrence: None)
  Receive Date: 20140725
  Receipt Date: 20140725
  Transmission Date: 20150326
  Serious: No
  Sender: FDA-Public Use
  Company Number: US-145558

PATIENT
  Sex: Male
  Weight: 21 kg

DRUGS (2)
  1. VARIZIG [Suspect]
     Active Substance: HUMAN VARICELLA-ZOSTER IMMUNE GLOBULIN
     Indication: ANTIVIRAL PROPHYLAXIS
     Route: 030
     Dates: start: 2014
  2. ASPIRIN. [Concomitant]
     Active Substance: ASPIRIN

REACTIONS (1)
  - Circumstance or information capable of leading to medication error [None]
